FAERS Safety Report 8618193-9 (Version None)
Quarter: 2012Q3

REPORT INFORMATION
  Report Type: 
  Country: None (occurrence: None)
  Receive Date: 20120824
  Receipt Date: 20120131
  Transmission Date: 20120928
  Serious: No
  Sender: FDA-Public Use
  Company Number: US-ASTRAZENECA-2011SE55327

PATIENT
  Age: 59 Year
  Sex: Female

DRUGS (2)
  1. SYMBICORT [Suspect]
     Dosage: 2 PUFFS, TWICE DAILY
     Route: 055
  2. SYMBICORT [Suspect]
     Dosage: 2 PUFFS, DAILY
     Route: 055

REACTIONS (2)
  - INAPPROPRIATE SCHEDULE OF DRUG ADMINISTRATION [None]
  - MALAISE [None]
